FAERS Safety Report 10171501 (Version 2)
Quarter: 2014Q2

REPORT INFORMATION
  Report Type: Spontaneous
  Country: IN (occurrence: None)
  Receive Date: 20140512
  Receipt Date: 20140605
  Transmission Date: 20141212
  Serious: Yes (Congenital Anomaly, Other)
  Sender: FDA-Public Use
  Company Number: AUR-APL-2014-05491

PATIENT
  Sex: Male
  Weight: 2.4 kg

DRUGS (1)
  1. PAROXETINE (PAROXETINE) [Suspect]
     Indication: DEPRESSION
     Route: 064

REACTIONS (14)
  - External auditory canal atresia [None]
  - Mandibulofacial dysostosis [None]
  - Heart disease congenital [None]
  - Maternal drugs affecting foetus [None]
  - Small for dates baby [None]
  - Hypertelorism of orbit [None]
  - Exophthalmos [None]
  - Micrognathia [None]
  - Choanal atresia [None]
  - Deafness [None]
  - Atrial septal defect [None]
  - Ventricular septal defect [None]
  - Congenital pulmonary valve atresia [None]
  - Cardiac arrest [None]
